FAERS Safety Report 5007639-3 (Version None)
Quarter: 2006Q2

REPORT INFORMATION
  Report Type: 
  Country: None (occurrence: None)
  Receive Date: 20060518
  Receipt Date: 20060509
  Transmission Date: 20061013
  Serious: Yes (Other)
  Sender: FDA-Public Use
  Company Number: 2006061714

PATIENT
  Age: 62 Year
  Sex: Male
  Weight: 77.1115 kg

DRUGS (2)
  1. LIPITOR [Suspect]
     Indication: PROPHYLAXIS
     Dosage: 10 MG (10 MG, 1 IN 1 D), ORAL
     Route: 048
     Dates: start: 20051201
  2. ASPIRIN [Concomitant]

REACTIONS (8)
  - DRY SKIN [None]
  - MYALGIA [None]
  - NIPPLE DISORDER [None]
  - PARAESTHESIA [None]
  - RETINOPATHY [None]
  - SKIN DISCOLOURATION [None]
  - VISUAL DISTURBANCE [None]
  - VITREOUS FLOATERS [None]
